FAERS Safety Report 16011256 (Version 1)
Quarter: 2019Q1

REPORT INFORMATION
  Report Type: Report from Study
  Country: IT (occurrence: IT)
  Receive Date: 20190227
  Receipt Date: 20190227
  Transmission Date: 20190418
  Serious: Yes (Other)
  Sender: FDA-Public Use
  Company Number: IT-TEVA-2019-IT-1016714

PATIENT
  Age: 82 Year
  Sex: Male

DRUGS (8)
  1. NORVASC [Concomitant]
     Active Substance: AMLODIPINE BESYLATE
  2. ALLOPURINOL. [Suspect]
     Active Substance: ALLOPURINOL
     Indication: HYPERURICAEMIA
     Dosage: 150 MILLIGRAM DAILY;
     Route: 048
     Dates: start: 20190201, end: 20190203
  3. KCL-RETARD 600 MG COMPRESSE A RILASCIO PROLUNGATO [Concomitant]
     Dosage: 1200 MG
     Route: 048
  4. LANOXIN [Concomitant]
     Active Substance: DIGOXIN
  5. COUMADIN [Concomitant]
     Active Substance: WARFARIN SODIUM
     Indication: ATRIAL FIBRILLATION
  6. LASITONE 25 MG + 37 MG CAPSULE RIGIDE [Concomitant]
  7. OMNIC 0,4 MG, CAPSULE RIGIDE A RILASCIO MODIFICATO [Concomitant]
  8. BISOPROLOL HEMIFUMARATE [Concomitant]
     Active Substance: BISOPROLOL FUMARATE
     Route: 048

REACTIONS (4)
  - Urticaria [Recovering/Resolving]
  - Erythema [Recovering/Resolving]
  - Localised oedema [Recovering/Resolving]
  - Eyelid oedema [Recovering/Resolving]

NARRATIVE: CASE EVENT DATE: 20190201
